FAERS Safety Report 6276261-3 (Version None)
Quarter: 2009Q3

REPORT INFORMATION
  Report Type: 
  Country: None (occurrence: None)
  Receive Date: 20090722
  Receipt Date: 20090708
  Transmission Date: 20100115
  Serious: Yes (Death, Hospitalization, Other)
  Sender: FDA-Public Use
  Company Number: PL-MEDIMMUNE-MEDI-0008440

PATIENT
  Sex: Male
  Weight: 4.5 kg

DRUGS (2)
  1. SYNAGIS [Suspect]
     Indication: BRONCHOPULMONARY DYSPLASIA
     Route: 030
     Dates: start: 20090109, end: 20090109
  2. SYNAGIS [Suspect]
     Route: 030
     Dates: start: 20090317, end: 20090317

REACTIONS (6)
  - LOCALISED OEDEMA [None]
  - LOWER RESPIRATORY TRACT INFECTION [None]
  - PNEUMONIA [None]
  - SEPSIS [None]
  - UPPER RESPIRATORY TRACT INFECTION [None]
  - WATERHOUSE-FRIDERICHSEN SYNDROME [None]
